FAERS Safety Report 9234350 (Version 1)
Quarter: 2013Q1

REPORT INFORMATION
  Report Type: Spontaneous
  Country: US (occurrence: None)
  Receive Date: 20121031
  Receipt Date: 20121031
  Transmission Date: 20140127
  Serious: No
  Sender: FDA-Public Use
  Company Number: PHEH2012US012693

PATIENT
  Sex: Female
  Weight: 78.9 kg

DRUGS (8)
  1. GILENYA [Suspect]
     Route: 048
     Dates: start: 201110
  2. SIMVASTATIN (SIMVASTATIN) TABLET [Concomitant]
  3. PRIMROSE OIL CAPSULE [Concomitant]
  4. LECITHIN (LECITHIN) CAPSULE [Concomitant]
  5. FISH OIL (FISH OIL) [Concomitant]
  6. VITAMIN D (ERGOCALCIFEROL) CAPSULE [Concomitant]
  7. MULTIVITAMIN (VITAMINS NOS) CAPSULE [Concomitant]
  8. AZOR (ALPRAZOLAM) TABLET [Concomitant]

REACTIONS (1)
  - Menstruation irregular [None]
